FAERS Safety Report 4892252-9 (Version None)
Quarter: 2006Q1

REPORT INFORMATION
  Report Type: 
  Country: None (occurrence: None)
  Receive Date: 20060124
  Receipt Date: 20060109
  Transmission Date: 20060701
  Serious: Yes (Hospitalization)
  Sender: FDA-Public Use
  Company Number: 200601IM000045

PATIENT
  Age: 65 Year
  Sex: Female
  Weight: 77.1115 kg

DRUGS (3)
  1. INFERGEN [Suspect]
     Indication: HEPATITIS C
     Dosage: 15 UG, QOD, SUBCUTANEOUS
     Route: 058
     Dates: start: 20031031, end: 20041115
  2. RIBAVIRIN [Concomitant]
  3. PAXIL [Concomitant]

REACTIONS (3)
  - ANAEMIA [None]
  - CONVULSION [None]
  - DIFFICULTY IN WALKING [None]
